FAERS Safety Report 6768009-0 (Version None)
Quarter: 2010Q2

REPORT INFORMATION
  Report Type: 
  Country: None (occurrence: None)
  Receive Date: 20100614
  Receipt Date: 20100610
  Transmission Date: 20101027
  Serious: Yes (Hospitalization)
  Sender: FDA-Public Use
  Company Number: A0864372A

PATIENT
  Sex: Female

DRUGS (2)
  1. AVANDIA [Suspect]
     Indication: DIABETES MELLITUS
     Route: 048
  2. AVANDAMET [Suspect]
     Indication: DIABETES MELLITUS
     Route: 048

REACTIONS (7)
  - CARDIAC FAILURE CONGESTIVE [None]
  - CARDIOVASCULAR DISORDER [None]
  - CHEST PAIN [None]
  - DYSPNOEA [None]
  - INJURY [None]
  - THROMBOSIS [None]
  - VISION BLURRED [None]
